FAERS Safety Report 17892321 (Version 2)
Quarter: 2020Q2

REPORT INFORMATION
  Report Type: Report from Study
  Country: None (occurrence: GB)
  Receive Date: 20200613
  Receipt Date: 20200618
  Transmission Date: 20200714
  Serious: Yes (Hospitalization)
  Sender: FDA-Public Use
  Company Number: GB-ABBVIE-20K-167-3395119-00

PATIENT
  Age: 76 Year
  Sex: Male

DRUGS (4)
  1. DUODOPA [Suspect]
     Active Substance: CARBIDOPA\LEVODOPA
     Indication: PARKINSON^S DISEASE
     Dosage: 5MG/1ML?20MG/1ML?100ML CASSETTE?CONTINUOUS DOSE-3.5MLS/HR.?AS DIRECTED
     Route: 050
     Dates: end: 2020
  2. DUODOPA [Suspect]
     Active Substance: CARBIDOPA\LEVODOPA
     Dosage: CONTINUOUS DOSE- 2.6MLS/HR
     Route: 050
     Dates: start: 2020, end: 202006
  3. DUODOPA [Suspect]
     Active Substance: CARBIDOPA\LEVODOPA
     Dosage: CONTINUOUS DOSE REDUCED TO 2.4MLS/HR
     Route: 050
     Dates: start: 202006
  4. DUODOPA [Suspect]
     Active Substance: CARBIDOPA\LEVODOPA
     Dosage: 5MG/1ML?20MG/1ML?100ML CASSETTE?CONTINUOUS DOSE-3.2MLS/HR.?AS DIRECTED
     Route: 050
     Dates: start: 2020, end: 2020

REACTIONS (12)
  - Blood thyroid stimulating hormone decreased [Unknown]
  - Paranoia [Unknown]
  - Panic reaction [Unknown]
  - Trigeminal neuralgia [Unknown]
  - Anxiety [Unknown]
  - Urinary tract infection [Unknown]
  - Hallucination, auditory [Unknown]
  - Constipation [Unknown]
  - Hallucination, visual [Unknown]
  - Respiratory disorder [Unknown]
  - Disorientation [Unknown]
  - Abnormal dreams [Unknown]

NARRATIVE: CASE EVENT DATE: 2020
